FAERS Safety Report 8588818-5 (Version None)
Quarter: 2012Q3

REPORT INFORMATION
  Report Type: 
  Country: None (occurrence: None)
  Receive Date: 20120813
  Receipt Date: 20120806
  Transmission Date: 20120928
  Serious: Yes (Hospitalization, Other)
  Sender: FDA-Public Use
  Company Number: JP-VERTEX PHARMACEUTICALS INC.-AE-2012-011829

PATIENT
  Age: 64 Year
  Sex: Male

DRUGS (11)
  1. TELAVIC (TELAPREVIR) [Suspect]
     Indication: HEPATITIS C
     Route: 048
     Dates: start: 20120615, end: 20120618
  2. REBETOL [Concomitant]
     Route: 048
     Dates: start: 20120629, end: 20120720
  3. CANDESARTAN CILEXETIL [Concomitant]
     Route: 048
  4. PEG-INTRON [Concomitant]
     Indication: HEPATITIS C
     Dates: start: 20120615, end: 20120615
  5. PEG-INTRON [Concomitant]
     Dates: start: 20120629, end: 20120720
  6. NIZATIDINE [Concomitant]
     Route: 048
  7. TELAVIC (TELAPREVIR) [Suspect]
     Route: 048
     Dates: start: 20120629, end: 20120720
  8. REBETOL [Concomitant]
     Route: 048
     Dates: start: 20120721, end: 20120727
  9. ADALAT [Concomitant]
     Route: 048
  10. BISOPROLOL FUMARATE [Concomitant]
     Route: 048
  11. REBETOL [Concomitant]
     Indication: HEPATITIS C
     Route: 048
     Dates: start: 20120615, end: 20120618

REACTIONS (3)
  - HAEMOGLOBIN DECREASED [None]
  - HYPERURICAEMIA [None]
  - BLOOD CREATININE INCREASED [None]
